FAERS Safety Report 4406733-5 (Version None)
Quarter: 2004Q3

REPORT INFORMATION
  Report Type: 
  Country: None (occurrence: None)
  Receive Date: 20040715
  Receipt Date: 20040701
  Transmission Date: 20050211
  Serious: Yes (Hospitalization)
  Sender: FDA-Public Use
  Company Number: 2004AP02513

PATIENT
  Age: 84 Year
  Sex: Male
  Weight: 62.5 kg

DRUGS (5)
  1. IRESSA [Suspect]
     Indication: NON-SMALL CELL LUNG CANCER
     Dosage: 250 MG DAIILY PO
     Route: 048
     Dates: start: 20040414, end: 20040416
  2. CARBOPLATIN [Concomitant]
  3. DOCETAXEL [Concomitant]
  4. GEMICITABINE [Concomitant]
  5. VINORELBINE TARTRATE [Concomitant]

REACTIONS (11)
  - ALANINE AMINOTRANSFERASE INCREASED [None]
  - ASPARTATE AMINOTRANSFERASE INCREASED [None]
  - BLOOD ALKALINE PHOSPHATASE INCREASED [None]
  - BLOOD LACTATE DEHYDROGENASE INCREASED [None]
  - C-REACTIVE PROTEIN INCREASED [None]
  - GAMMA-GLUTAMYLTRANSFERASE INCREASED [None]
  - JAUNDICE [None]
  - LIVER DISORDER [None]
  - PNEUMONIA ASPIRATION [None]
  - PYREXIA [None]
  - VOMITING [None]
